FAERS Safety Report 16630359 (Version 2)
Quarter: 2019Q3

REPORT INFORMATION
  Report Type: Spontaneous
  Country: US (occurrence: US)
  Receive Date: 20190725
  Receipt Date: 20190729
  Transmission Date: 20191004
  Serious: Yes (Other)
  Sender: FDA-Public Use
  Company Number: US-OTSUKA-2019_020573

PATIENT
  Age: 69 Year
  Sex: Female
  Weight: 122.45 kg

DRUGS (1)
  1. ABILIFY MAINTENA [Suspect]
     Active Substance: ARIPIPRAZOLE
     Indication: PRODUCT USED FOR UNKNOWN INDICATION
     Dosage: 400 MG, QM (EVERY 4WEEKS)
     Route: 030
     Dates: start: 20190320, end: 20190710

REACTIONS (1)
  - Delusion [Unknown]

NARRATIVE: CASE EVENT DATE: 20190320
